FAERS Safety Report 7121659-4 (Version None)
Quarter: 2010Q4

REPORT INFORMATION
  Report Type: 
  Country: None (occurrence: None)
  Receive Date: 20101124
  Receipt Date: 20100706
  Transmission Date: 20110411
  Serious: Yes (Other)
  Sender: FDA-Public Use
  Company Number: US-PFIZER INC-2010084921

PATIENT
  Sex: Male
  Weight: 84 kg

DRUGS (3)
  1. ALDACTONE [Suspect]
     Indication: HYPERTENSION
     Dosage: UNK
     Dates: start: 20070101, end: 20080101
  2. NORVASC [Concomitant]
     Dosage: UNK
  3. ZANTAC [Concomitant]
     Dosage: UNK

REACTIONS (1)
  - GYNAECOMASTIA [None]
